FAERS Safety Report 12915715 (Version 2)
Quarter: 2016Q4

REPORT INFORMATION
  Report Type: Report from Study
  Country: JP (occurrence: JP)
  Receive Date: 20161106
  Receipt Date: 20161123
  Transmission Date: 20170207
  Serious: Yes (Other)
  Sender: FDA-Public Use
  Company Number: JP-ROCHE-1849523

PATIENT

DRUGS (2)
  1. OXALIPLATIN. [Suspect]
     Active Substance: OXALIPLATIN
     Indication: RECTAL CANCER
     Route: 065
  2. CAPECITABINE. [Suspect]
     Active Substance: CAPECITABINE
     Indication: RECTAL CANCER
     Route: 048

REACTIONS (7)
  - Decreased appetite [Unknown]
  - Thrombocytopenia [Unknown]
  - Vomiting [Unknown]
  - Diarrhoea [Unknown]
  - Mucosal inflammation [Unknown]
  - Nausea [Unknown]
  - Appendicitis [Unknown]
